FAERS Safety Report 23753566 (Version 1)
Quarter: 2024Q2

REPORT INFORMATION
  Report Type: Spontaneous
  Country: US (occurrence: None)
  Receive Date: 20240417
  Receipt Date: 20240417
  Transmission Date: 20240716
  Serious: Yes (Hospitalization)
  Sender: FDA-Public Use
  Company Number: None

PATIENT
  Age: 50 Year
  Sex: Female
  Weight: 65.25 kg

DRUGS (3)
  1. REPATHA [Suspect]
     Active Substance: EVOLOCUMAB
     Indication: Apolipoprotein A-I increased
     Dosage: 2X MONTH SUBCUTANEOUS
     Route: 058
     Dates: start: 20240402, end: 20240403
  2. PLAVIX [Concomitant]
     Active Substance: CLOPIDOGREL BISULFATE
  3. VITAMINS [Concomitant]
     Active Substance: VITAMINS

REACTIONS (21)
  - Toxicity to various agents [None]
  - Arthralgia [None]
  - Influenza [None]
  - Insomnia [None]
  - Lethargy [None]
  - Communication disorder [None]
  - Memory impairment [None]
  - Derealisation [None]
  - Adjustment disorder with depressed mood [None]
  - Chest discomfort [None]
  - Chest pain [None]
  - Hypertension [None]
  - Drug ineffective [None]
  - Blood glucose increased [None]
  - Connective tissue inflammation [None]
  - Myositis [None]
  - Lip swelling [None]
  - Lip exfoliation [None]
  - Skin exfoliation [None]
  - Rash [None]
  - Brain fog [None]

NARRATIVE: CASE EVENT DATE: 20240402
